FAERS Safety Report 9017019 (Version 1)
Quarter: 2013Q1

REPORT INFORMATION
  Report Type: Spontaneous
  Country: CA (occurrence: CA)
  Receive Date: 20130117
  Receipt Date: 20130117
  Transmission Date: 20140127
  Serious: Yes (Other)
  Sender: FDA-Public Use
  Company Number: CA-GENZYME-FABR-1002967

PATIENT
  Age: 36 None
  Sex: Male

DRUGS (3)
  1. FABRAZYME [Suspect]
     Indication: FABRY^S DISEASE
     Dosage: 80 MG, Q2W
     Route: 042
     Dates: start: 20121025
  2. FLEET [Suspect]
     Indication: PREOPERATIVE CARE
     Dosage: UNK
     Route: 065
  3. TYLENOL [Concomitant]
     Indication: PREMEDICATION
     Dosage: 325 MGX 3, UNK
     Route: 065

REACTIONS (3)
  - Anogenital warts [Unknown]
  - Nausea [Unknown]
  - Vomiting [Unknown]
